FAERS Safety Report 6376360-1 (Version None)
Quarter: 2009Q3

REPORT INFORMATION
  Report Type: 
  Country: None (occurrence: None)
  Receive Date: 20090922
  Receipt Date: 20090922
  Transmission Date: 20100115
  Serious: No
  Sender: FDA-Public Use
  Company Number: None

PATIENT
  Age: 77 Year
  Sex: Male
  Weight: 86.637 kg

DRUGS (1)
  1. CIALIS [Suspect]
     Indication: ERECTILE DYSFUNCTION
     Dosage: 20 MG 1 ONE PILL
     Dates: start: 20090712, end: 20090712

REACTIONS (2)
  - IMPAIRED WORK ABILITY [None]
  - VISUAL IMPAIRMENT [None]
